FAERS Safety Report 6347284-0 (Version None)
Quarter: 2009Q3

REPORT INFORMATION
  Report Type: 
  Country: None (occurrence: None)
  Receive Date: 20090910
  Receipt Date: 20090804
  Transmission Date: 20100115
  Serious: Yes (Other)
  Sender: FDA-Public Use
  Company Number: US-PFIZER INC-2009250448

PATIENT
  Sex: Male
  Weight: 97.522 kg

DRUGS (3)
  1. SOLU-MEDROL [Suspect]
     Route: 048
  2. SOLU-MEDROL [Suspect]
     Dates: start: 20090722
  3. METHYLPREDNISOLONE AND METHYLPREDNISOLONE ACETATE AND METHYLPREDNISOLO [Suspect]

REACTIONS (2)
  - KNEE OPERATION [None]
  - WHITE BLOOD CELL COUNT INCREASED [None]
